FAERS Safety Report 10013132 (Version 2)
Quarter: 2014Q1

REPORT INFORMATION
  Report Type: Spontaneous
  Country: US (occurrence: US)
  Receive Date: 20140314
  Receipt Date: 20140318
  Transmission Date: 20141002
  Serious: No
  Sender: FDA-Public Use
  Company Number: US-009507513-1403USA002164

PATIENT
  Age: 80 Year
  Sex: Female
  Weight: 68.27 kg

DRUGS (8)
  1. OXYTROL FOR WOMEN [Suspect]
     Indication: NOCTURIA
     Dosage: UNK UNK, UNKNOWN
     Route: 062
     Dates: start: 20140201
  2. OXYTROL FOR WOMEN [Suspect]
     Indication: POLLAKIURIA
  3. OXYBUTYNIN [Concomitant]
     Indication: BLADDER DISORDER
     Dosage: 5 MG, UNKNOWN
  4. METHENAMINE HIPPURATE [Concomitant]
     Indication: BLADDER DISORDER
     Dosage: 1 G, UNKNOWN
  5. DILTIAZEM HYDROCHLORIDE [Concomitant]
     Indication: BLOOD PRESSURE ABNORMAL
     Dosage: 120 MG, UNKNOWN
  6. NEXIUM [Concomitant]
     Indication: GASTROOESOPHAGEAL REFLUX DISEASE
     Dosage: 40 MG, UNKNOWN
  7. GABAPENTIN [Concomitant]
     Indication: CEREBROVASCULAR ACCIDENT
     Dosage: 100 MG, UNKNOWN
  8. GABAPENTIN [Concomitant]
     Indication: PAIN

REACTIONS (3)
  - Overdose [Unknown]
  - Off label use [Unknown]
  - Drug effect decreased [Unknown]
